FAERS Safety Report 24652392 (Version 1)
Quarter: 2024Q4

REPORT INFORMATION
  Report Type: Spontaneous
  Country: PL (occurrence: PL)
  Receive Date: 20241122
  Receipt Date: 20241122
  Transmission Date: 20250114
  Serious: Yes (Hospitalization, Other)
  Sender: FRESENIUS KABI
  Company Number: PL-AMGEN-POLSP2024217899

PATIENT
  Age: 41 Year
  Sex: Male

DRUGS (4)
  1. OXALIPLATIN [Suspect]
     Active Substance: OXALIPLATIN
     Indication: Colorectal cancer metastatic
     Dosage: UNK?ROUTE OF ADMIN: UNKNOWN
     Dates: start: 202007, end: 202107
  2. VECTIBIX [Suspect]
     Active Substance: PANITUMUMAB
     Indication: Colorectal cancer metastatic
     Dosage: UNK?SOLUTION FOR INJECTION
     Dates: start: 202007
  3. LEUCOVORIN [Concomitant]
     Active Substance: LEUCOVORIN\LEUCOVORIN CALCIUM
     Indication: Colorectal cancer metastatic
     Dosage: UNK
     Dates: start: 202007, end: 202107
  4. FLUOROURACIL [Concomitant]
     Active Substance: FLUOROURACIL
     Indication: Colorectal cancer metastatic
     Dosage: UNK
     Dates: start: 202007, end: 202107

REACTIONS (9)
  - Drug-induced liver injury [Unknown]
  - C-reactive protein increased [Unknown]
  - Postoperative abscess [Unknown]
  - Colorectal cancer metastatic [Unknown]
  - Thyroid mass [Unknown]
  - Orchitis [Unknown]
  - Erythema [Unknown]
  - Bone pain [Unknown]
  - Hyperhidrosis [Unknown]

NARRATIVE: CASE EVENT DATE: 20220101
